FAERS Safety Report 7900553-2 (Version None)
Quarter: 2011Q4

REPORT INFORMATION
  Report Type: 
  Country: None (occurrence: None)
  Receive Date: 20111108
  Receipt Date: 20111024
  Transmission Date: 20120403
  Serious: No
  Sender: FDA-Public Use
  Company Number: US-PFIZER INC-2011260551

PATIENT
  Sex: Female

DRUGS (5)
  1. LISINOPRIL [Suspect]
     Dosage: UNK
  2. MOBIC [Suspect]
     Dosage: UNK
  3. PENICILLIN G POTASSIUM [Suspect]
     Dosage: UNK
  4. BENADRYL [Suspect]
     Dosage: UNK
  5. LEXAPRO [Suspect]
     Dosage: UNK

REACTIONS (1)
  - DRUG HYPERSENSITIVITY [None]
